FAERS Safety Report 9298816 (Version 2)
Quarter: 2013Q2

REPORT INFORMATION
  Report Type: Spontaneous
  Country: CO (occurrence: CO)
  Receive Date: 20130520
  Receipt Date: 20130527
  Transmission Date: 20140414
  Serious: Yes (Life-Threatening, Hospitalization, Other)
  Sender: FDA-Public Use
  Company Number: CO-MERCK-1305COL011309

PATIENT
  Age: 44 Year
  Sex: Male

DRUGS (4)
  1. PEG-INTRON [Suspect]
     Indication: HEPATITIS C
     Dosage: 100 MICROGRAM, QW,  REDIPENS
     Route: 058
     Dates: start: 20121012, end: 201305
  2. PEG-INTRON [Suspect]
     Dosage: 50 MICROGRAM, QW,  REDIPENS
     Route: 058
     Dates: start: 201305
  3. REBETOL [Suspect]
     Indication: HEPATITIS C
     Dosage: 800 MG DAILY
     Route: 048
     Dates: start: 20121012
  4. VICTRELIS [Suspect]
     Indication: HEPATITIS C
     Dosage: 2400 MG PER DAY
     Route: 048
     Dates: start: 20121012

REACTIONS (8)
  - Pneumonia [Not Recovered/Not Resolved]
  - Nasopharyngitis [Recovering/Resolving]
  - Abscess [Unknown]
  - Aspiration pleural cavity [Unknown]
  - Thoracic cavity drainage [Unknown]
  - Pyrexia [Recovering/Resolving]
  - Cough [Recovering/Resolving]
  - Asthenia [Recovering/Resolving]
